FAERS Safety Report 9863159 (Version 2)
Quarter: 2014Q1

REPORT INFORMATION
  Report Type: Report from Study
  Country: US (occurrence: US)
  Receive Date: 20140203
  Receipt Date: 20140214
  Transmission Date: 20141002
  Serious: Yes (Hospitalization)
  Sender: FDA-Public Use
  Company Number: US-ACTELION-A-NJ2014-94268

PATIENT
  Age: 77 Year
  Sex: Male

DRUGS (4)
  1. MACITENTAN [Suspect]
     Indication: CONNECTIVE TISSUE DISORDER
     Dosage: 10 MG, UNK
     Route: 048
     Dates: start: 20131218
  2. TYVASO [Concomitant]
     Dosage: 36 UNK, UNK
  3. ADCIRCA [Concomitant]
     Dosage: 40 MG, QD
     Route: 048
     Dates: start: 20130830
  4. REMODULIN [Concomitant]
     Dosage: 36 NG/KG, PER MIN
     Dates: start: 20131122

REACTIONS (1)
  - Intestinal obstruction [Unknown]
